FAERS Safety Report 18443200 (Version 1)
Quarter: 2020Q4

REPORT INFORMATION
  Report Type: Report from Study
  Country: IT (occurrence: IT)
  Receive Date: 20201030
  Receipt Date: 20201030
  Transmission Date: 20210114
  Serious: Yes (Hospitalization)
  Sender: FDA-Public Use
  Company Number: IT-TEVA-2020-IT-1841897

PATIENT
  Age: 8 Year
  Sex: Female

DRUGS (1)
  1. VINCRISTINE SULFATE. [Suspect]
     Active Substance: VINCRISTINE SULFATE
     Indication: LEUKAEMIA
     Route: 042
     Dates: start: 20200803, end: 20200803

REACTIONS (4)
  - Leukopenia [Recovered/Resolved]
  - Eosinophil count decreased [Recovered/Resolved]
  - Neutropenia [Recovered/Resolved]
  - Erythropenia [Recovered/Resolved]

NARRATIVE: CASE EVENT DATE: 20200809
